FAERS Safety Report 7080770-7 (Version None)
Quarter: 2010Q4

REPORT INFORMATION
  Report Type: 
  Country: None (occurrence: None)
  Receive Date: 20101022
  Receipt Date: 20101008
  Transmission Date: 20110411
  Serious: Yes (Hospitalization, Other)
  Sender: FDA-Public Use
  Company Number: 2010MA003536

PATIENT
  Age: 76 Year
  Sex: Male

DRUGS (3)
  1. IBUPROFEN [Suspect]
     Indication: GROIN PAIN
     Dosage: 400 MG; TID; PO
     Route: 048
  2. ACETYLSALICYLIC ACID SRT [Concomitant]
  3. PARACETAMOL [Concomitant]

REACTIONS (5)
  - GENERALISED OEDEMA [None]
  - MYALGIA [None]
  - PRURITUS [None]
  - RASH [None]
  - SKIN EXFOLIATION [None]
